FAERS Safety Report 8156473-4 (Version None)
Quarter: 2012Q1

REPORT INFORMATION
  Report Type: 
  Country: None (occurrence: None)
  Receive Date: 20120222
  Receipt Date: 20120215
  Transmission Date: 20120608
  Serious: Yes (Other)
  Sender: FDA-Public Use
  Company Number: US-PFIZER INC-2012041346

PATIENT
  Sex: Female
  Weight: 94.331 kg

DRUGS (12)
  1. MEDROL [Interacting]
     Indication: ARTHROPATHY
     Dosage: 4 MG, 2X/DAY
     Route: 048
     Dates: start: 20111101, end: 20120212
  2. OXYCODONE [Concomitant]
     Indication: NEURALGIA
     Dosage: 3 TABLETS OF 3 MG IN THE EVENING AND 2 TABLETS OF 3 MG AT NIGHT
     Route: 048
  3. MEDROL [Interacting]
     Indication: INFLAMMATORY PAIN
     Dosage: 4 MG DAILY
     Route: 048
     Dates: start: 20090101, end: 20110101
  4. AMITRIPTYLINE HCL [Suspect]
     Indication: MUSCLE SPASMS
     Dosage: 25 MG, DAILY
  5. OMEPRAZOLE [Concomitant]
     Indication: GASTROOESOPHAGEAL REFLUX DISEASE
     Dosage: 40 MG, DAILY
  6. LYRICA [Interacting]
     Dosage: 100 MG, 2X/DAY
     Route: 048
     Dates: start: 20100101
  7. SINGULAIR [Interacting]
     Indication: ASTHMA
     Dosage: UNK
  8. TAXOL [Concomitant]
     Indication: DEPRESSION
     Dosage: 20 MG, DAILY
  9. PROZAC [Concomitant]
     Indication: DEPRESSION
     Dosage: UNK
     Route: 048
  10. PENTASA [Suspect]
     Indication: CROHN'S DISEASE
     Dosage: 750 MG, 3X/DAY
     Route: 048
  11. PENTASA [Suspect]
     Dosage: 750 MG, 2X/DAY
     Route: 048
  12. LYRICA [Interacting]
     Indication: NEURALGIA
     Dosage: 450 MG IN A DAY
     Route: 048
     Dates: start: 20050101

REACTIONS (15)
  - HYPERSENSITIVITY [None]
  - DRUG INTERACTION [None]
  - AGITATION [None]
  - ECCHYMOSIS [None]
  - OEDEMA PERIPHERAL [None]
  - IRRITABILITY [None]
  - AGGRESSION [None]
  - DRUG ADMINISTRATION ERROR [None]
  - FACE OEDEMA [None]
  - ERYTHEMA [None]
  - DRY MOUTH [None]
  - WEIGHT INCREASED [None]
  - FEELING ABNORMAL [None]
  - DYSPNOEA [None]
  - PAIN IN EXTREMITY [None]
